FAERS Safety Report 5472737-7 (Version None)
Quarter: 2007Q3

REPORT INFORMATION
  Report Type: 
  Country: None (occurrence: None)
  Receive Date: 20070927
  Receipt Date: 20070913
  Transmission Date: 20080115
  Serious: Yes (Other)
  Sender: FDA-Public Use
  Company Number: CIP07001801

PATIENT
  Age: 94 Year
  Sex: Female

DRUGS (7)
  1. RISEDRONATE SODIUM [Suspect]
     Indication: OSTEOPOROSIS
     Dosage: 2.5 MG DAILY, ORAL
     Route: 048
     Dates: start: 20070109, end: 20070319
  2. AMLODIPINE BESYLATE [Concomitant]
  3. CALFALEAD (ALFACALCIDOL) [Concomitant]
  4. ASPIRIN [Concomitant]
  5. MENIACE (BETAHISTINE MESILATE) [Concomitant]
  6. HUSCODE (METHYLEPHEDRINE HYDROCHLORIDE-DL, DIHYDROCODEINE PHOSPHATE, C [Concomitant]
  7. CLEANAL (FUDOSTEINE) [Concomitant]

REACTIONS (1)
  - SKIN ULCER [None]
